FAERS Safety Report 16524754 (Version 2)
Quarter: 2019Q3

REPORT INFORMATION
  Report Type: Spontaneous
  Country: US (occurrence: US)
  Receive Date: 20190703
  Receipt Date: 20190731
  Transmission Date: 20191004
  Serious: No
  Sender: FDA-Public Use
  Company Number: US-ASTRAZENECA-2019SE92354

PATIENT
  Age: 67 Year
  Sex: Female
  Weight: 97.5 kg

DRUGS (1)
  1. BYDUREON BCISE [Suspect]
     Active Substance: EXENATIDE
     Indication: BLOOD INSULIN ABNORMAL
     Route: 058
     Dates: start: 2018

REACTIONS (6)
  - Incorrect dose administered by device [Not Recovered/Not Resolved]
  - Injection site nodule [Not Recovered/Not Resolved]
  - Needle issue [Unknown]
  - Device leakage [Unknown]
  - Feeling jittery [Not Recovered/Not Resolved]
  - Injection site haemorrhage [Recovered/Resolved]

NARRATIVE: CASE EVENT DATE: 2018
